FAERS Safety Report 25417342 (Version 2)
Quarter: 2025Q3

REPORT INFORMATION
  Report Type: Spontaneous
  Country: US (occurrence: None)
  Receive Date: 20250610
  Receipt Date: 20250905
  Transmission Date: 20251020
  Serious: No
  Sender: INCYTE
  Company Number: US-INCYTE CORPORATION-2025IN005958

PATIENT
  Age: 70 Year

DRUGS (3)
  1. JAKAFI [Suspect]
     Active Substance: RUXOLITINIB
     Indication: Essential thrombocythaemia
     Dosage: 10 MILLIGRAM, BID
  2. JAKAFI [Suspect]
     Active Substance: RUXOLITINIB
     Indication: Chronic obstructive pulmonary disease
  3. OHTUVAYRE [Concomitant]
     Active Substance: ENSIFENTRINE
     Indication: Product used for unknown indication
     Route: 065

REACTIONS (3)
  - Mouth ulceration [Unknown]
  - Fatigue [Recovering/Resolving]
  - Off label use [Unknown]
